FAERS Safety Report 11162579 (Version 1)
Quarter: 2015Q2

REPORT INFORMATION
  Report Type: Spontaneous
  Country: US (occurrence: None)
  Receive Date: 20150603
  Receipt Date: 20150603
  Transmission Date: 20150821
  Serious: No
  Sender: FDA-Public Use
  Company Number: None

PATIENT
  Age: 24 Year
  Sex: Female

DRUGS (2)
  1. SOVALDI [Suspect]
     Active Substance: SOFOSBUVIR
     Route: 048
     Dates: start: 20150429
  2. RIBAVIRIN  200MG ZYDUS [Suspect]
     Active Substance: RIBAVIRIN
     Route: 048
     Dates: start: 20150429

REACTIONS (4)
  - Nausea [None]
  - Depression [None]
  - Vomiting [None]
  - Agitation [None]
